FAERS Safety Report 6958149-5 (Version None)
Quarter: 2010Q3

REPORT INFORMATION
  Report Type: 
  Country: None (occurrence: None)
  Receive Date: 20100831
  Receipt Date: 20100819
  Transmission Date: 20110219
  Serious: Yes (Life-Threatening, Hospitalization)
  Sender: FDA-Public Use
  Company Number: JP-PFIZER INC-2009268938

PATIENT
  Age: 68 Year
  Sex: Male
  Weight: 51 kg

DRUGS (4)
  1. SUNITINIB MALATE [Suspect]
     Indication: RENAL CELL CARCINOMA
     Dosage: 50 MG, 1X/DAY
     Route: 048
     Dates: start: 20090602, end: 20090814
  2. URALYT-U [Concomitant]
     Dosage: UNK
     Route: 048
  3. MAG-LAX [Concomitant]
     Indication: CONSTIPATION
     Dosage: UNK
     Route: 048
     Dates: start: 20090607, end: 20090612
  4. LAC B [Concomitant]
     Indication: DIARRHOEA
     Dosage: UNK
     Route: 048
     Dates: start: 20090609, end: 20090614

REACTIONS (3)
  - HYPONATRAEMIA [None]
  - PLATELET COUNT DECREASED [None]
  - PYOTHORAX [None]
